FAERS Safety Report 24859258 (Version 1)
Quarter: 2025Q1

REPORT INFORMATION
  Report Type: Spontaneous
  Country: CN (occurrence: CN)
  Receive Date: 20250118
  Receipt Date: 20250118
  Transmission Date: 20250409
  Serious: Yes (Death, Other)
  Sender: SENTISS AG
  Company Number: CN-SENTISSAG-2025SAGLIT-00002

PATIENT
  Age: 55 Year
  Sex: Male

DRUGS (1)
  1. LIDOCAINE HYDROCHLORIDE [Suspect]
     Active Substance: LIDOCAINE HYDROCHLORIDE
     Indication: Epidural anaesthesia
     Route: 008

REACTIONS (1)
  - Death [Fatal]
